FAERS Safety Report 10227704 (Version 1)
Quarter: 2014Q2

REPORT INFORMATION
  Report Type: Spontaneous
  Country: US (occurrence: US)
  Receive Date: 20140610
  Receipt Date: 20140610
  Transmission Date: 20141212
  Serious: Yes (Death)
  Sender: FDA-Public Use
  Company Number: US-PFIZER INC-2014154378

PATIENT
  Age: 70 Year
  Sex: Male

DRUGS (1)
  1. SOMAVERT [Suspect]
     Dosage: 30 MG, 1X/DAY (7 DAYS A WEEK)
     Dates: start: 200411

REACTIONS (1)
  - Neoplasm malignant [Fatal]
